FAERS Safety Report 7199007-3 (Version None)
Quarter: 2010Q4

REPORT INFORMATION
  Report Type: 
  Country: None (occurrence: None)
  Receive Date: 20101228
  Receipt Date: 20100315
  Transmission Date: 20110411
  Serious: No
  Sender: FDA-Public Use
  Company Number: 2009BI041113

PATIENT
  Age: 54 Year
  Sex: Female

DRUGS (1)
  1. TYSABRI [Suspect]
     Indication: MULTIPLE SCLEROSIS
     Route: 042
     Dates: start: 20091005, end: 20091203

REACTIONS (8)
  - BLOOD PRESSURE FLUCTUATION [None]
  - HYPERSENSITIVITY [None]
  - INFUSION RELATED REACTION [None]
  - PRURITUS [None]
  - PRURITUS GENERALISED [None]
  - VAGINAL INFECTION [None]
  - VULVOVAGINAL BURNING SENSATION [None]
  - VULVOVAGINAL PRURITUS [None]
